FAERS Safety Report 5370320-5 (Version None)
Quarter: 2007Q2

REPORT INFORMATION
  Report Type: 
  Country: None (occurrence: None)
  Receive Date: 20070626
  Receipt Date: 20070618
  Transmission Date: 20071010
  Serious: Yes (Life-Threatening)
  Sender: FDA-Public Use
  Company Number: FR-ROCHE-503032

PATIENT
  Age: 44 Year
  Sex: Male

DRUGS (11)
  1. CELLCEPT [Suspect]
     Indication: PANCREAS TRANSPLANT
     Dosage: INDICATION REPORTED AS PANCREAS AND RENAL GRAFT.
     Route: 048
     Dates: start: 20000615
  2. CELLCEPT [Suspect]
     Route: 048
  3. SOLU-MEDROL [Suspect]
     Indication: DRUG USE FOR UNKNOWN INDICATION
     Route: 048
     Dates: start: 20000615
  4. NEORAL [Suspect]
     Indication: DRUG USE FOR UNKNOWN INDICATION
     Route: 048
     Dates: start: 20000615
  5. NEORAL [Suspect]
     Route: 048
  6. SOLU-MEDROL [Concomitant]
     Dosage: DRUG NAME REPORTED AS SOLUMEDROL.
  7. MEDROL [Concomitant]
     Dosage: ON AN UNKNOWN DATE, A PROGRESSIVE DECREASE IN THE DOSAGE WAS PERFORMED UNTIL A DOSAGE OF 8 MG PER D+
  8. FLODIL LP [Concomitant]
  9. BACTRIM [Concomitant]
  10. OMEPRAZOLE [Concomitant]
  11. ASPEGIC 325 [Concomitant]

REACTIONS (1)
  - ENCEPHALITIS [None]
